FAERS Safety Report 8530022-0 (Version None)
Quarter: 2012Q3

REPORT INFORMATION
  Report Type: 
  Country: None (occurrence: None)
  Receive Date: 20120723
  Receipt Date: 20120717
  Transmission Date: 20120928
  Serious: Yes (Other)
  Sender: FDA-Public Use
  Company Number: PHHY2012DE061886

PATIENT
  Sex: Male

DRUGS (2)
  1. EXTAVIA [Suspect]
     Indication: MULTIPLE SCLEROSIS
     Route: 058
  2. ANALGESICS [Interacting]
     Indication: PAIN

REACTIONS (2)
  - CIRCULATORY COLLAPSE [None]
  - DRUG INTERACTION [None]
